FAERS Safety Report 17400757 (Version 1)
Quarter: 2020Q1

REPORT INFORMATION
  Report Type: Spontaneous
  Country: GB (occurrence: GB)
  Receive Date: 20200211
  Receipt Date: 20200211
  Transmission Date: 20200409
  Serious: Yes (Disabling)
  Sender: FDA-Public Use
  Company Number: GB-ACCORD-172211

PATIENT
  Age: 86 Year
  Sex: Female
  Weight: 79 kg

DRUGS (10)
  1. QUININE [Concomitant]
     Active Substance: QUININE
  2. PARACETAMOL [Concomitant]
     Active Substance: ACETAMINOPHEN
     Dosage: COATED 90%
  3. DOXAZOSIN [Suspect]
     Active Substance: DOXAZOSIN MESYLATE
     Indication: RENAL FAILURE
     Route: 048
     Dates: start: 201803, end: 20200126
  4. FUROSEMIDE. [Concomitant]
     Active Substance: FUROSEMIDE
  5. SODIUM BICARBONATE. [Concomitant]
     Active Substance: SODIUM BICARBONATE
  6. ACETYLSALICYLIC ACID [Concomitant]
     Active Substance: ASPIRIN
  7. IRON [Concomitant]
     Active Substance: IRON
  8. ALFACALCIDOL [Concomitant]
     Active Substance: ALFACALCIDOL
  9. FELODIPINE. [Concomitant]
     Active Substance: FELODIPINE
  10. NOVOMIX [Concomitant]
     Active Substance: INSULIN ASPART

REACTIONS (2)
  - Tachycardia [Recovering/Resolving]
  - Dyspnoea [Unknown]

NARRATIVE: CASE EVENT DATE: 2019
